FAERS Safety Report 4952011-5 (Version None)
Quarter: 2006Q1

REPORT INFORMATION
  Report Type: 
  Country: None (occurrence: None)
  Receive Date: 20060322
  Receipt Date: 20060322
  Transmission Date: 20060701
  Serious: No
  Sender: FDA-Public Use
  Company Number: None

PATIENT
  Age: 79 Year
  Sex: Male
  Weight: 95.709 kg

DRUGS (13)
  1. ZETIA [Suspect]
     Indication: HYPERLIPIDAEMIA
     Dosage: 10MG TABLET  QD  PO
     Route: 048
     Dates: start: 20050501
  2. ZETIA [Suspect]
     Indication: HYPERLIPIDAEMIA
     Dosage: 10MG TABLET  QD  PO
     Route: 048
     Dates: start: 20060301
  3. TRICOR [Concomitant]
  4. ALLEGRA [Concomitant]
  5. COREG [Concomitant]
  6. COZAAR [Concomitant]
  7. DARVOCET [Concomitant]
  8. FLOMAX [Concomitant]
  9. FERROUS SULFATE TAB [Concomitant]
  10. GABAPENTIN [Concomitant]
  11. LASIX [Concomitant]
  12. GLUCOTROL XL [Concomitant]
  13. LIPITOR [Concomitant]

REACTIONS (3)
  - CONTUSION [None]
  - ECCHYMOSIS [None]
  - PURPURA [None]
